FAERS Safety Report 19660539 (Version 1)
Quarter: 2021Q3

REPORT INFORMATION
  Report Type: Spontaneous
  Country: US (occurrence: US)
  Receive Date: 20210804
  Receipt Date: 20210804
  Transmission Date: 20211014
  Serious: Yes (Disabling)
  Sender: FDA-Public Use
  Company Number: None

PATIENT
  Age: 72 Year
  Sex: Male
  Weight: 117.03 kg

DRUGS (5)
  1. METRO [Concomitant]
  2. IRON [Concomitant]
     Active Substance: IRON
  3. METFORMIN [Suspect]
     Active Substance: METFORMIN HYDROCHLORIDE
     Indication: TYPE 2 DIABETES MELLITUS
     Dosage: ?          QUANTITY:180 DF DOSAGE FORM;?
     Route: 048
     Dates: start: 201304
  4. GAPEZTIN [Concomitant]
  5. FOLIC ACID. [Concomitant]
     Active Substance: FOLIC ACID

REACTIONS (2)
  - Mental disorder [None]
  - Cognitive disorder [None]

NARRATIVE: CASE EVENT DATE: 20200401
